FAERS Safety Report 7976504-1 (Version None)
Quarter: 2011Q4

REPORT INFORMATION
  Report Type: 
  Country: None (occurrence: None)
  Receive Date: 20111213
  Receipt Date: 20111024
  Transmission Date: 20120403
  Serious: No
  Sender: FDA-Public Use
  Company Number: US-AMGEN-USASP2011055192

PATIENT
  Age: 37 Year
  Sex: Female

DRUGS (3)
  1. ENBREL [Suspect]
     Indication: PSORIATIC ARTHROPATHY
     Dosage: UNK
  2. HUMIRA [Concomitant]
     Indication: PSORIATIC ARTHROPATHY
     Dosage: 40 MG/ 0.8 ML, Q2WK
     Dates: start: 20110901
  3. ROPINIROLE                         /01242902/ [Concomitant]
     Dosage: UNK

REACTIONS (3)
  - LACRIMATION INCREASED [None]
  - EYE SWELLING [None]
  - OCULAR HYPERAEMIA [None]
